FAERS Safety Report 5343505-1 (Version None)
Quarter: 2007Q2

REPORT INFORMATION
  Report Type: 
  Country: None (occurrence: None)
  Receive Date: 20070604
  Receipt Date: 20070524
  Transmission Date: 20071010
  Serious: Yes (Hospitalization)
  Sender: FDA-Public Use
  Company Number: PHHO2003BE16287

PATIENT
  Age: 72 Year
  Sex: Female
  Weight: 70 kg

DRUGS (2)
  1. TAMOXIFEN CITRATE [Suspect]
     Indication: BREAST CANCER
     Dosage: 20MG DAILY
     Route: 048
     Dates: start: 20021010
  2. ZOCOR [Concomitant]
     Dates: start: 20010601

REACTIONS (7)
  - APPENDICECTOMY [None]
  - HYSTERECTOMY [None]
  - LEIOMYOMA [None]
  - OOPHORECTOMY [None]
  - PAPILLOMA [None]
  - PELVIC MASS [None]
  - VAGINAL HAEMORRHAGE [None]
